FAERS Safety Report 6035902-6 (Version None)
Quarter: 2009Q1

REPORT INFORMATION
  Report Type: 
  Country: None (occurrence: None)
  Receive Date: 20090113
  Receipt Date: 20090109
  Transmission Date: 20090719
  Serious: Yes (Hospitalization)
  Sender: FDA-Public Use
  Company Number: A0725690A

PATIENT
  Age: 71 Year
  Sex: Female
  Weight: 54.5 kg

DRUGS (8)
  1. AVANDIA [Suspect]
     Dosage: 8MG PER DAY
     Route: 048
     Dates: start: 20020205, end: 20070601
  2. ACTOS [Concomitant]
  3. PRANDIN [Concomitant]
  4. AMARYL [Concomitant]
  5. GLYBURIDE [Concomitant]
  6. GLUCOTROL [Concomitant]
  7. VIOXX [Concomitant]
  8. ZOCOR [Concomitant]
     Dates: start: 20010626, end: 20051215

REACTIONS (6)
  - ARTERIOSCLEROSIS [None]
  - CORONARY ARTERY STENOSIS [None]
  - DYSLIPIDAEMIA [None]
  - HYPERTENSION [None]
  - MYOCARDIAL INFARCTION [None]
  - PAIN [None]
